FAERS Safety Report 9384712 (Version 1)
Quarter: 2013Q3

REPORT INFORMATION
  Report Type: Spontaneous
  Country: US (occurrence: US)
  Receive Date: 20130705
  Receipt Date: 20130705
  Transmission Date: 20140515
  Serious: No
  Sender: FDA-Public Use
  Company Number: US-JNJFOC-20130620657

PATIENT
  Age: 36 Year
  Sex: Male

DRUGS (1)
  1. INVEGA SUSTENNA [Suspect]
     Indication: BALANCE DISORDER
     Route: 030
     Dates: start: 2012

REACTIONS (2)
  - Drug dose omission [Not Recovered/Not Resolved]
  - Off label use [Unknown]
